FAERS Safety Report 20040730 (Version 1)
Quarter: 2021Q4

REPORT INFORMATION
  Report Type: Spontaneous
  Country: US (occurrence: None)
  Receive Date: 20211108
  Receipt Date: 20211108
  Transmission Date: 20220303
  Serious: Yes (Hospitalization, Disabling)
  Sender: FDA-Public Use
  Company Number: None

PATIENT
  Age: 20 Year
  Sex: Male
  Weight: 63 kg

DRUGS (1)
  1. PROPECIA [Suspect]
     Active Substance: FINASTERIDE
     Indication: Androgenetic alopecia
     Route: 048
     Dates: start: 20210726, end: 20210727

REACTIONS (7)
  - Muscle atrophy [None]
  - Muscle twitching [None]
  - Gingival recession [None]
  - Loose tooth [None]
  - Lymphadenopathy [None]
  - Cognitive disorder [None]
  - Feeling abnormal [None]

NARRATIVE: CASE EVENT DATE: 20210726
